FAERS Safety Report 15606045 (Version 1)
Quarter: 2018Q4

REPORT INFORMATION
  Report Type: Spontaneous
  Country: US (occurrence: US)
  Receive Date: 20181106
  Receipt Date: 20181106
  Transmission Date: 20190205
  Serious: No
  Sender: FDA-Public Use
  Company Number: None

PATIENT
  Age: 56 Year
  Sex: Male

DRUGS (1)
  1. REGADENOSON [Suspect]
     Active Substance: REGADENOSON
     Indication: CHEST PAIN
     Dates: start: 20181029, end: 20181029

REACTIONS (1)
  - Seizure [None]

NARRATIVE: CASE EVENT DATE: 20181029
